APPROVED DRUG PRODUCT: SODIUM NITROPRUSSIDE
Active Ingredient: SODIUM NITROPRUSSIDE
Strength: 25MG/ML
Dosage Form/Route: INJECTABLE;INJECTION
Application: A211934 | Product #001
Applicant: EUGIA PHARMA SPECIALITIES LTD
Approved: Dec 10, 2020 | RLD: No | RS: No | Type: DISCN